FAERS Safety Report 20845322 (Version 1)
Quarter: 2022Q2

REPORT INFORMATION
  Report Type: Spontaneous
  Country: IT (occurrence: None)
  Receive Date: 20220518
  Receipt Date: 20220518
  Transmission Date: 20220721
  Serious: Yes (Hospitalization)
  Sender: FDA-Public Use
  Company Number: 2022A184251

PATIENT
  Age: 73 Year
  Sex: Male
  Weight: 60 kg

DRUGS (2)
  1. EVUSHELD [Suspect]
     Active Substance: CILGAVIMAB\TIXAGEVIMAB
     Indication: COVID-19 prophylaxis
     Dosage: 1.0DF ONCE/SINGLE ADMINISTRATION
     Route: 030
     Dates: start: 20220503, end: 20220503
  2. MOGAMULIZUMAB [Concomitant]
     Active Substance: MOGAMULIZUMAB
     Indication: Cutaneous T-cell lymphoma
     Route: 065
     Dates: start: 20220427, end: 20220427

REACTIONS (2)
  - Erythrodermic atopic dermatitis [Recovering/Resolving]
  - Eczema [Recovering/Resolving]

NARRATIVE: CASE EVENT DATE: 20220504
